FAERS Safety Report 18664964 (Version 1)
Quarter: 2020Q4

REPORT INFORMATION
  Report Type: Spontaneous
  Country: US (occurrence: US)
  Receive Date: 20201225
  Receipt Date: 20201225
  Transmission Date: 20210114
  Serious: No
  Sender: FDA-Public Use
  Company Number: US-GLAXOSMITHKLINE-US2020249584

PATIENT
  Sex: Female

DRUGS (1)
  1. BREO ELLIPTA [Suspect]
     Active Substance: FLUTICASONE FUROATE\VILANTEROL TRIFENATATE
     Indication: PRODUCT USED FOR UNKNOWN INDICATION
     Dosage: UNK
     Dates: start: 202008

REACTIONS (5)
  - Expired product administered [Unknown]
  - Cough [Not Recovered/Not Resolved]
  - Heart rate increased [Recovered/Resolved]
  - Intentional product misuse [Unknown]
  - Dyspnoea [Not Recovered/Not Resolved]
